FAERS Safety Report 7323639-2 (Version None)
Quarter: 2011Q1

REPORT INFORMATION
  Report Type: 
  Country: None (occurrence: None)
  Receive Date: 20110216
  Receipt Date: 20110203
  Transmission Date: 20110831
  Serious: Yes (Other)
  Sender: FDA-Public Use
  Company Number: 2011MA000171

PATIENT
  Sex: Male

DRUGS (42)
  1. COREG [Concomitant]
  2. LOVASTATIN [Concomitant]
  3. CRESTOR [Concomitant]
  4. INSULIN [Concomitant]
  5. ASPIRIN PLUS [Concomitant]
  6. AMLODIPINE [Concomitant]
  7. TRAZODONE HCL [Concomitant]
  8. ELVAIL [Concomitant]
  9. NITOBID [Concomitant]
  10. PHENERGAN [Concomitant]
  11. OMEPRAZOLE [Concomitant]
  12. VESICARE [Concomitant]
  13. AZMACORT [Concomitant]
  14. PROMETHAZINE [Concomitant]
  15. PLAVIX [Concomitant]
  16. XOPENEX [Concomitant]
  17. VALIUM [Concomitant]
  18. DEPAKOTE [Concomitant]
  19. CLARINEX [Concomitant]
  20. PANLOR DC [Concomitant]
  21. PROZAC [Concomitant]
  22. LORCET-HD [Concomitant]
  23. BENAZAPRIL [Concomitant]
  24. LIPITOR [Concomitant]
  25. LIPITOR [Concomitant]
  26. FLOMAX [Concomitant]
  27. FUROSEMIDE [Concomitant]
  28. ZOLPIDEM [Concomitant]
  29. BENADRYL [Concomitant]
  30. METOCLOPRAMIDE [Suspect]
     Indication: IMPAIRED GASTRIC EMPTYING
     Dosage: ; PO
     Route: 048
     Dates: start: 19990501, end: 20091101
  31. LOTENSIN [Concomitant]
  32. DIAZEPAM [Concomitant]
  33. ADVAIR DISKUS 100/50 [Concomitant]
  34. GABAPENTIN [Concomitant]
  35. NEXIUM [Concomitant]
  36. KLONOPIN [Concomitant]
  37. MAXAIR [Concomitant]
  38. MS CONTIN [Concomitant]
  39. ALBUTEROL [Concomitant]
  40. HYDROCODONE [Concomitant]
  41. CIPROFLOXACIN [Concomitant]
  42. ERYTHROMYCIN [Concomitant]

REACTIONS (14)
  - EXTRAPYRAMIDAL DISORDER [None]
  - EMOTIONAL DISORDER [None]
  - RESTLESS LEGS SYNDROME [None]
  - PAIN [None]
  - EXCESSIVE EYE BLINKING [None]
  - DYSAESTHESIA [None]
  - ANXIETY [None]
  - MUSCLE TWITCHING [None]
  - DIABETIC NEUROPATHY [None]
  - CONDITION AGGRAVATED [None]
  - TARDIVE DYSKINESIA [None]
  - ECONOMIC PROBLEM [None]
  - GRIMACING [None]
  - AKATHISIA [None]
